FAERS Safety Report 8376015-8 (Version None)
Quarter: 2012Q2

REPORT INFORMATION
  Report Type: 
  Country: None (occurrence: None)
  Receive Date: 20120522
  Receipt Date: 20120516
  Transmission Date: 20120825
  Serious: Yes (Other)
  Sender: FDA-Public Use
  Company Number: PHHY2012FI027606

PATIENT
  Sex: Female

DRUGS (2)
  1. ZOLEDRONOC ACID [Suspect]
     Dosage: 5 MG, UNK
     Route: 042
     Dates: start: 20120313
  2. DOXYCYCLINE [Concomitant]

REACTIONS (25)
  - HYPERHIDROSIS [None]
  - UPPER AIRWAY OBSTRUCTION [None]
  - ERYTHEMA [None]
  - URTICARIA [None]
  - ARTHRALGIA [None]
  - FLUSHING [None]
  - DIZZINESS [None]
  - DYSPNOEA [None]
  - PRURITUS [None]
  - CHEST PAIN [None]
  - HYPERVENTILATION [None]
  - PALPITATIONS [None]
  - ANAPHYLACTOID REACTION [None]
  - CHEST DISCOMFORT [None]
  - VOMITING [None]
  - RASH [None]
  - EXTRASYSTOLES [None]
  - PYREXIA [None]
  - MYALGIA [None]
  - RESPIRATORY DISTRESS [None]
  - NAUSEA [None]
  - ARRHYTHMIA [None]
  - SYNCOPE [None]
  - TYPE I HYPERSENSITIVITY [None]
  - CHOKING [None]
